FAERS Safety Report 7626438-7 (Version None)
Quarter: 2011Q3

REPORT INFORMATION
  Report Type: 
  Country: None (occurrence: None)
  Receive Date: 20110721
  Receipt Date: 20110712
  Transmission Date: 20111222
  Serious: Yes (Disabling, Other)
  Sender: FDA-Public Use
  Company Number: US-ASTRAZENECA-2010SE37479

PATIENT
  Age: 47 Year
  Sex: Female

DRUGS (24)
  1. SEROQUEL [Suspect]
     Indication: ANXIETY
     Route: 048
  2. SEROQUEL [Suspect]
     Route: 048
  3. SEROQUEL [Suspect]
     Route: 048
  4. SEROQUEL [Suspect]
     Route: 048
     Dates: start: 20060101, end: 20110601
  5. SEROQUEL [Suspect]
     Route: 048
     Dates: start: 20060101, end: 20110601
  6. SEROQUEL [Suspect]
     Indication: PANIC ATTACK
     Route: 048
  7. SEROQUEL [Suspect]
     Route: 048
     Dates: start: 20100601
  8. SEROQUEL [Suspect]
     Route: 048
     Dates: start: 20100601
  9. NEXIUM [Suspect]
     Indication: GASTROOESOPHAGEAL REFLUX DISEASE
     Dosage: 40MG DAILY, PRN
     Route: 048
  10. SEROQUEL [Suspect]
     Route: 048
  11. SEROQUEL [Suspect]
     Route: 048
     Dates: start: 20100601
  12. SEROQUEL [Suspect]
     Route: 048
     Dates: start: 20060101, end: 20110601
  13. SEROQUEL [Suspect]
     Route: 048
     Dates: start: 20110601
  14. SEROQUEL [Suspect]
     Route: 048
     Dates: start: 20110601
  15. SEROQUEL [Suspect]
     Route: 048
     Dates: start: 20110601
  16. ZOLOFT [Concomitant]
     Route: 048
  17. SEROQUEL [Suspect]
     Indication: DEPRESSION
     Route: 048
  18. SEROQUEL [Suspect]
     Route: 048
  19. NEXIUM [Suspect]
     Route: 048
     Dates: start: 20080101
  20. SEROQUEL [Suspect]
     Route: 048
  21. KLONOPIN [Concomitant]
     Route: 048
  22. SEROQUEL [Suspect]
     Route: 048
  23. SYNTHROID [Concomitant]
     Route: 048
  24. CLONAZEPAM [Concomitant]

REACTIONS (18)
  - PANIC ATTACK [None]
  - FEELING ABNORMAL [None]
  - DRUG DOSE OMISSION [None]
  - MENTAL DISORDER [None]
  - IRRITABILITY [None]
  - ABDOMINAL DISCOMFORT [None]
  - NAUSEA [None]
  - MALAISE [None]
  - INCORRECT DOSE ADMINISTERED [None]
  - MENTAL DISABILITY [None]
  - SUICIDAL IDEATION [None]
  - DECREASED APPETITE [None]
  - INSOMNIA [None]
  - DYSPEPSIA [None]
  - DEPRESSION [None]
  - ANXIETY [None]
  - AGITATION [None]
  - WRONG TECHNIQUE IN DRUG USAGE PROCESS [None]
